FAERS Safety Report 4371370-8 (Version None)
Quarter: 2004Q2

REPORT INFORMATION
  Report Type: 
  Country: None (occurrence: None)
  Receive Date: 20040604
  Receipt Date: 20040521
  Transmission Date: 20050107
  Serious: Yes (Death)
  Sender: FDA-Public Use
  Company Number: 2004S1001502

PATIENT
  Age: 84 Year
  Sex: Male

DRUGS (7)
  1. CLOZAPINE [Suspect]
     Indication: SCHIZOPHRENIA
     Dosage: 50MG TID, THEN 25MG BIG, 50MG Q 8H + 25MG QHS, ORAL
     Route: 048
     Dates: start: 20030801, end: 20040419
  2. LORAZEPAM [Concomitant]
  3. ATROPINE [Concomitant]
  4. ACETAMINOPHEN [Concomitant]
  5. OXYCODONE [Concomitant]
  6. IBUPROFEN [Concomitant]
  7. RANITIDINE [Concomitant]

REACTIONS (1)
  - PNEUMONIA [None]
